FAERS Safety Report 16872606 (Version 1)
Quarter: 2019Q4

REPORT INFORMATION
  Report Type: Spontaneous
  Country: US (occurrence: US)
  Receive Date: 20190807
  Receipt Date: 20190807
  Transmission Date: 20200122
  Serious: No
  Sender: FDA-Public Use
  Company Number: None

PATIENT
  Age: 87 Year
  Sex: Female

DRUGS (1)
  1. ERLOTINIB 150MG TAB [Suspect]
     Active Substance: ERLOTINIB
     Dosage: ?          OTHER
     Route: 048
     Dates: start: 20190604

REACTIONS (4)
  - Headache [None]
  - Vision blurred [None]
  - Therapy non-responder [None]
  - Acne [None]

NARRATIVE: CASE EVENT DATE: 20190807
